FAERS Safety Report 8900354 (Version 1)
Quarter: 2012Q4

REPORT INFORMATION
  Report Type: 
  Country: US (occurrence: US)
  Receive Date: 20121108
  Receipt Date: 20121108
  Transmission Date: 20130627
  Serious: No
  Sender: FDA-Public Use
  Company Number: US-AMGEN-USASP2012037870

PATIENT
  Age: 55 Year
  Sex: Female
  Weight: 78.01 kg

DRUGS (7)
  1. ENBREL [Suspect]
     Indication: PRODUCT USED FOR UNKNOWN INDICATION
     Dosage: 50 mg, qwk
     Route: 058
  2. METHOTREXATE [Concomitant]
     Dosage: 2.5 mg, UNK
  3. GLUCOPHAGE [Concomitant]
     Dosage: 850 mg, UNK
  4. LEVOTHYROXIN [Concomitant]
     Dosage: 150 mug, UNK
  5. PROZAC [Concomitant]
     Dosage: 20 mg, UNK
  6. PERCOCET-5 [Concomitant]
     Dosage: 325 mg, UNK
  7. FOLIC ACID [Concomitant]
     Dosage: UNK

REACTIONS (6)
  - Nodule [Unknown]
  - Arthralgia [Unknown]
  - Pain in extremity [Unknown]
  - Vertigo [Recovering/Resolving]
  - Gastrointestinal infection [Recovering/Resolving]
  - Nausea [Recovering/Resolving]
